FAERS Safety Report 18239225 (Version 2)
Quarter: 2020Q3

REPORT INFORMATION
  Report Type: Spontaneous
  Country: GT (occurrence: GT)
  Receive Date: 20200907
  Receipt Date: 20200922
  Transmission Date: 20201103
  Serious: No
  Sender: FDA-Public Use
  Company Number: GT-US-PROVELL PHARMACEUTICALS LLC-9184082

PATIENT
  Age: 10 Month
  Sex: Male

DRUGS (1)
  1. EUTHYROX [Suspect]
     Active Substance: LEVOTHYROXINE SODIUM
     Indication: HYPERTHYROIDISM

REACTIONS (4)
  - Growth disorder [Unknown]
  - Motor developmental delay [Unknown]
  - Off label use [Unknown]
  - Weight gain poor [Unknown]
